FAERS Safety Report 8373704-6 (Version None)
Quarter: 2012Q2

REPORT INFORMATION
  Report Type: 
  Country: None (occurrence: None)
  Receive Date: 20120521
  Receipt Date: 20120509
  Transmission Date: 20120825
  Serious: Yes (Other)
  Sender: FDA-Public Use
  Company Number: CA-ROCHE-1069135

PATIENT
  Sex: Female

DRUGS (7)
  1. SINGULAIR [Concomitant]
  2. VENTOLIN [Concomitant]
  3. ADVAIR DISKUS 100/50 [Concomitant]
  4. WELLBUTRIN [Concomitant]
  5. NASONEX [Concomitant]
  6. ZOLOFT [Concomitant]
  7. XOLAIR [Suspect]
     Indication: ASTHMA
     Route: 058

REACTIONS (2)
  - ASTHMA [None]
  - NASOPHARYNGITIS [None]
